FAERS Safety Report 18648496 (Version 1)
Quarter: 2020Q4

REPORT INFORMATION
  Report Type: Not Available
  Country: None (occurrence: None)
  Receive Date: 20201222
  Receipt Date: 20201222
  Transmission Date: 20210114
  Serious: No
  Sender: FDA-Public Use
  Company Number: US-AKORN-157678

PATIENT
  Sex: Female

DRUGS (1)
  1. ZIOPTAN [Suspect]
     Active Substance: TAFLUPROST

REACTIONS (5)
  - Eye pain [Unknown]
  - Vision blurred [Unknown]
  - Asthenopia [Unknown]
  - Erythema [Unknown]
  - Ocular hyperaemia [Unknown]
